FAERS Safety Report 6601342-1 (Version None)
Quarter: 2010Q1

REPORT INFORMATION
  Report Type: 
  Country: None (occurrence: None)
  Receive Date: 20100217
  Receipt Date: 20100208
  Transmission Date: 20100710
  Serious: Yes (Hospitalization)
  Sender: FDA-Public Use
  Company Number: SPV1-2010-00230

PATIENT
  Age: 80 Year
  Sex: Male

DRUGS (2)
  1. FOSRENOL [Suspect]
     Indication: HYPERPHOSPHATAEMIA
     Dosage: 2250 MG
     Dates: start: 20090901, end: 20100206
  2. PHOSBLOCK (SEVELAMER HYDROCHLORIDE) [Concomitant]

REACTIONS (2)
  - FRACTURE [None]
  - MELAENA [None]
